FAERS Safety Report 5004469-3 (Version None)
Quarter: 2006Q2

REPORT INFORMATION
  Report Type: 
  Country: None (occurrence: None)
  Receive Date: 20060511
  Receipt Date: 20060426
  Transmission Date: 20061013
  Serious: Yes (Hospitalization)
  Sender: FDA-Public Use
  Company Number: 2006RL000119

PATIENT
  Age: 75 Year
  Sex: Female
  Weight: 72.8023 kg

DRUGS (8)
  1. RYTHMOL [Suspect]
     Indication: ATRIAL FIBRILLATION
     Dosage: 225 MG;BID;PO
     Route: 048
     Dates: start: 20051201
  2. DIGOXIN [Suspect]
     Indication: ATRIAL FIBRILLATION
     Dosage: 0.25 MG;QD;PO
     Route: 048
     Dates: start: 20051116, end: 20051211
  3. METOPROLOL SUCCINATE [Suspect]
     Indication: ATRIAL FIBRILLATION
     Dosage: 25 MG;QD;PO
     Route: 048
     Dates: start: 20051116, end: 20051211
  4. DILTIAZEM [Suspect]
     Indication: ATRIAL FIBRILLATION
     Dosage: 240; 180 MG;QD;PO
     Route: 048
     Dates: start: 20050822, end: 20051115
  5. DILTIAZEM [Suspect]
     Indication: ATRIAL FIBRILLATION
     Dosage: 240; 180 MG;QD;PO
     Route: 048
     Dates: start: 20051116
  6. FOSAMAX [Concomitant]
  7. TAMOXIFEN [Concomitant]
  8. WARFARIN SODIUM [Concomitant]

REACTIONS (6)
  - BACK PAIN [None]
  - BUNDLE BRANCH BLOCK LEFT [None]
  - DRUG INEFFECTIVE [None]
  - ELECTROCARDIOGRAM ST-T SEGMENT ABNORMAL [None]
  - RHYTHM IDIOVENTRICULAR [None]
  - SINUS BRADYCARDIA [None]
